FAERS Safety Report 17164395 (Version 1)
Quarter: 2019Q4

REPORT INFORMATION
  Report Type: Spontaneous
  Country: US (occurrence: US)
  Receive Date: 20191217
  Receipt Date: 20191217
  Transmission Date: 20200122
  Serious: Yes (Hospitalization)
  Sender: FDA-Public Use
  Company Number: US-PFIZER INC-2019541260

PATIENT
  Age: 63 Year
  Sex: Female

DRUGS (1)
  1. LORBRENA [Suspect]
     Active Substance: LORLATINIB
     Indication: METASTATIC BRONCHIAL CARCINOMA
     Dosage: 100 MG, UNK

REACTIONS (1)
  - Lower limb fracture [Unknown]
